FAERS Safety Report 13572062 (Version 3)
Quarter: 2017Q3

REPORT INFORMATION
  Report Type: Spontaneous
  Country: JP (occurrence: JP)
  Receive Date: 20170523
  Receipt Date: 20170911
  Transmission Date: 20171127
  Serious: Yes (Disabling)
  Sender: FDA-Public Use
  Company Number: JP-ROCHE-1938009

PATIENT
  Age: 75 Year
  Sex: Female

DRUGS (7)
  1. ADONA (JAPAN) [Concomitant]
     Indication: MACULAR OEDEMA
     Route: 048
     Dates: start: 20160728, end: 20170413
  2. CARNACULIN [Concomitant]
     Active Substance: KALLIDINOGENASE
     Indication: MACULAR OEDEMA
     Route: 048
     Dates: start: 20160728, end: 20170413
  3. LUCENTIS [Suspect]
     Active Substance: RANIBIZUMAB
     Indication: MACULAR OEDEMA
     Route: 031
     Dates: start: 20161011
  4. BRONUCK [Concomitant]
     Active Substance: BROMFENAC SODIUM
     Indication: MACULAR OEDEMA
     Route: 047
     Dates: start: 20160808
  5. LUCENTIS [Suspect]
     Active Substance: RANIBIZUMAB
     Indication: RETINAL VEIN OCCLUSION
     Route: 031
     Dates: start: 20170111
  6. LUCENTIS [Suspect]
     Active Substance: RANIBIZUMAB
     Route: 031
     Dates: start: 20170218
  7. LUCENTIS [Suspect]
     Active Substance: RANIBIZUMAB
     Route: 031
     Dates: start: 20170424, end: 20170424

REACTIONS (1)
  - Visual acuity reduced [Not Recovered/Not Resolved]

NARRATIVE: CASE EVENT DATE: 20170111
